FAERS Safety Report 6183835-7 (Version None)
Quarter: 2009Q2

REPORT INFORMATION
  Report Type: 
  Country: None (occurrence: None)
  Receive Date: 20090506
  Receipt Date: 20090506
  Transmission Date: 20091009
  Serious: Yes (Other)
  Sender: FDA-Public Use
  Company Number: None

PATIENT
  Sex: Female
  Weight: 57.38 kg

DRUGS (1)
  1. TRIAMTERENE AND HYDROCHLOROTHIAZIDE [Suspect]
     Indication: HYPERTENSION
     Dosage: 37.5/25 ONCE QD PO
     Route: 048
     Dates: start: 20050630, end: 20070402

REACTIONS (2)
  - PRODUCT SUBSTITUTION ISSUE [None]
  - RASH ERYTHEMATOUS [None]
